FAERS Safety Report 23983876 (Version 1)
Quarter: 2024Q2

REPORT INFORMATION
  Report Type: Spontaneous
  Country: US (occurrence: US)
  Receive Date: 20240618
  Receipt Date: 20240618
  Transmission Date: 20240715
  Serious: No
  Sender: FDA-Public Use
  Company Number: US-AUROBINDO-AUR-APL-2024-008432

PATIENT
  Age: 83 Year
  Sex: Male
  Weight: 65.77 kg

DRUGS (1)
  1. TAMSULOSIN HYDROCHLORIDE [Suspect]
     Active Substance: TAMSULOSIN HYDROCHLORIDE
     Indication: Prostate infection
     Dosage: 0.4 MILLIGRAM, ONCE A DAY ( STARTED A COUPLE OF MONTHS AGO)
     Route: 048

REACTIONS (6)
  - Pollakiuria [Not Recovered/Not Resolved]
  - Drug ineffective [Unknown]
  - Intentional product use issue [Unknown]
  - Therapeutic product effect incomplete [Unknown]
  - Product substitution issue [Unknown]
  - Product quality issue [Unknown]
